FAERS Safety Report 5715759-0 (Version None)
Quarter: 2008Q2

REPORT INFORMATION
  Report Type: 
  Country: None (occurrence: None)
  Receive Date: 20080423
  Receipt Date: 20080423
  Transmission Date: 20081010
  Serious: Yes (Other)
  Sender: FDA-Public Use
  Company Number: None

PATIENT
  Age: 20 Year
  Sex: Male
  Weight: 81.6475 kg

DRUGS (1)
  1. AMOXICILLIN CLAVULANATE 875/125 RANBAXY [Suspect]
     Indication: PHARYNGITIS STREPTOCOCCAL
     Dates: start: 20070716, end: 20070726

REACTIONS (5)
  - NO THERAPEUTIC RESPONSE [None]
  - PHARMACEUTICAL PRODUCT COMPLAINT [None]
  - PHARYNGOLARYNGEAL PAIN [None]
  - PYREXIA [None]
  - RASH [None]
